FAERS Safety Report 16532058 (Version 1)
Quarter: 2019Q3

REPORT INFORMATION
  Report Type: Spontaneous
  Country: US (occurrence: US)
  Receive Date: 20190704
  Receipt Date: 20190704
  Transmission Date: 20191004
  Serious: Yes (Other)
  Sender: FDA-Public Use
  Company Number: US-PFIZER INC-2019273856

PATIENT
  Age: 53 Year
  Sex: Female

DRUGS (4)
  1. FENTANYL CITRATE. [Suspect]
     Active Substance: FENTANYL CITRATE
     Dosage: UNK
     Dates: start: 2010
  2. NEURONTIN [Suspect]
     Active Substance: GABAPENTIN
     Dosage: UNK
     Dates: start: 2010
  3. ACTIQ [Suspect]
     Active Substance: FENTANYL CITRATE
     Dosage: UNK
     Dates: start: 2010
  4. LYRICA [Suspect]
     Active Substance: PREGABALIN
     Dosage: UNK
     Dates: start: 2010

REACTIONS (6)
  - Mental impairment [Unknown]
  - Constipation [Unknown]
  - Fatigue [Unknown]
  - Feeling abnormal [Unknown]
  - Dental caries [Unknown]
  - Carpal tunnel syndrome [Unknown]
